FAERS Safety Report 10177656 (Version 2)
Quarter: 2014Q2

REPORT INFORMATION
  Report Type: Spontaneous
  Country: CH (occurrence: CH)
  Receive Date: 20140516
  Receipt Date: 20140516
  Transmission Date: 20141212
  Serious: Yes (Hospitalization)
  Sender: FDA-Public Use
  Company Number: CH-CUBIST PHARMACEUTICALS, INC.-2014CBST000068

PATIENT
  Sex: 0

DRUGS (9)
  1. CUBICIN [Suspect]
     Indication: ENDOCARDITIS STAPHYLOCOCCAL
     Dosage: 6.7 MG/KG, QD
     Route: 042
     Dates: start: 20120417, end: 20120516
  2. CUBICIN [Suspect]
     Indication: ENDOCARDITIS
     Dosage: 500 MG, QD
     Route: 042
     Dates: start: 20120417, end: 20120516
  3. CUBICIN [Suspect]
     Indication: OFF LABEL USE
  4. RIMACTAN                           /00146901/ [Concomitant]
     Indication: ENDOCARDITIS
     Dosage: 600 MG, BID
     Route: 048
     Dates: start: 20120228, end: 20120516
  5. TOREM                              /01036501/ [Concomitant]
     Indication: CARDIAC FAILURE
     Dosage: 10 MG, QD
     Route: 048
     Dates: start: 20120302
  6. TRITTICO [Concomitant]
     Indication: DEPRESSION
     Dosage: 100 MG, QD
     Route: 048
     Dates: start: 20120301
  7. MARCOUMAR [Concomitant]
     Indication: ANTICOAGULANT THERAPY
     Dosage: 3 MG, UNK
     Route: 048
  8. METOZOK [Concomitant]
     Indication: CARDIAC FAILURE
     Dosage: 25 MG, QD
     Route: 048
     Dates: start: 20120302
  9. LISITENS [Concomitant]
     Indication: CARDIAC FAILURE
     Dosage: 5 MG, QD
     Route: 048
     Dates: start: 20120302

REACTIONS (2)
  - Right ventricular failure [Recovered/Resolved]
  - Left ventricular failure [None]
